FAERS Safety Report 5324207-4 (Version None)
Quarter: 2007Q2

REPORT INFORMATION
  Report Type: 
  Country: None (occurrence: None)
  Receive Date: 20070514
  Receipt Date: 20070503
  Transmission Date: 20071010
  Serious: Yes (Hospitalization)
  Sender: FDA-Public Use
  Company Number: IT-ROCHE-496075

PATIENT
  Age: 65 Year
  Sex: Female

DRUGS (1)
  1. ROCEPHIN [Suspect]
     Indication: INFECTION
     Route: 030
     Dates: start: 20070414, end: 20070415

REACTIONS (5)
  - DYSPNOEA [None]
  - ERYTHEMA [None]
  - OEDEMA [None]
  - PRURITUS [None]
  - SYNCOPE [None]
